FAERS Safety Report 4667581-4 (Version None)
Quarter: 2005Q2

REPORT INFORMATION
  Report Type: 
  Country: None (occurrence: None)
  Receive Date: 20050502
  Receipt Date: 20040319
  Transmission Date: 20051028
  Serious: Yes (Hospitalization)
  Sender: FDA-Public Use
  Company Number: 1567

PATIENT
  Age: 30 Year
  Sex: Male

DRUGS (5)
  1. ONTAK [Suspect]
     Indication: MYCOSIS FUNGOIDES
     Dosage: 9 UG/KG/D QD IV
     Route: 042
     Dates: start: 20031101, end: 20030101
  2. ONTAK [Suspect]
     Indication: MYCOSIS FUNGOIDES
     Dosage: 18 UG/KG/D QD IV
     Route: 042
     Dates: start: 20040101
  3. DEXAMETHASONE [Concomitant]
  4. DIPHENHYDRAMINE HCL [Concomitant]
  5. NORMAL SALINE [Concomitant]

REACTIONS (1)
  - OEDEMA PERIPHERAL [None]
